FAERS Safety Report 5877567-X (Version None)
Quarter: 2008Q3

REPORT INFORMATION
  Report Type: 
  Country: None (occurrence: None)
  Receive Date: 20080911
  Receipt Date: 20080903
  Transmission Date: 20090109
  Serious: Yes (Hospitalization)
  Sender: FDA-Public Use
  Company Number: PHHY2008JP18689

PATIENT
  Sex: Male

DRUGS (10)
  1. COMTAN [Suspect]
     Indication: PARKINSON'S DISEASE
     Dosage: 700 MG DAILY
     Route: 048
     Dates: start: 20080725, end: 20080815
  2. CARBIDOPA AND LEVODOPA [Concomitant]
     Indication: PARKINSON'S DISEASE
     Dosage: 700MG DAILY
     Route: 048
     Dates: start: 19940101
  3. SYMMETREL [Concomitant]
     Indication: PARKINSON'S DISEASE
     Dosage: 150MG DAILY
     Route: 048
     Dates: start: 19940101, end: 20080815
  4. PRAMIPEXOLE DIHYDROCHLORIDE [Concomitant]
     Route: 048
  5. FP [Concomitant]
     Indication: PARKINSON'S DISEASE
     Dosage: 5MG DAILY
     Route: 048
     Dates: start: 20050921, end: 20080815
  6. PRAMIPEXOLE DIHYDROCHLORIDE [Concomitant]
     Indication: PARKINSON'S DISEASE
     Dosage: 1.5MG DAILY
     Route: 048
     Dates: start: 20070612
  7. MAGLAX [Concomitant]
     Indication: CONSTIPATION
     Dosage: 2250MG DAILY
     Route: 048
     Dates: start: 20060425
  8. GASMOTIN [Concomitant]
     Indication: STOMACH DISCOMFORT
     Dosage: 15MG DAILY
     Route: 048
     Dates: start: 20070710
  9. LORAZEPAM [Concomitant]
     Indication: INSOMNIA
     Dosage: 0.5MG DAILY
     Route: 048
     Dates: start: 20071207, end: 20080815
  10. SEVEN EP [Concomitant]
     Indication: STOMACH DISCOMFORT
     Dosage: 3 DF/DAY
     Route: 048
     Dates: start: 19971120, end: 20080815

REACTIONS (13)
  - ALTERED STATE OF CONSCIOUSNESS [None]
  - BLOOD CREATINE PHOSPHOKINASE DECREASED [None]
  - BLOOD SODIUM DECREASED [None]
  - BODY TEMPERATURE INCREASED [None]
  - ENDOTRACHEAL INTUBATION [None]
  - EXTUBATION [None]
  - FEELING ABNORMAL [None]
  - GAIT DISTURBANCE [None]
  - GLASGOW COMA SCALE ABNORMAL [None]
  - HEAT ILLNESS [None]
  - HYPONATRAEMIA [None]
  - JAPAN COMA SCALE ABNORMAL [None]
  - NEUROLEPTIC MALIGNANT SYNDROME [None]
